FAERS Safety Report 18465612 (Version 1)
Quarter: 2020Q4

REPORT INFORMATION
  Report Type: Spontaneous
  Country: US (occurrence: US)
  Receive Date: 20201104
  Receipt Date: 20201104
  Transmission Date: 20210114
  Serious: Yes (Other)
  Sender: FDA-Public Use
  Company Number: US-NAPPMUNDI-USA-2020-0155446

PATIENT
  Sex: Male

DRUGS (2)
  1. OXYCONTIN [Suspect]
     Active Substance: OXYCODONE HYDROCHLORIDE
     Dosage: 60 MG, DAILY
     Route: 048
  2. OXYCONTIN [Suspect]
     Active Substance: OXYCODONE HYDROCHLORIDE
     Indication: PRODUCT USED FOR UNKNOWN INDICATION
     Dosage: 2 X 10 MG, DAILY
     Route: 048
     Dates: start: 2002

REACTIONS (8)
  - Peroneal nerve palsy [Unknown]
  - Gait disturbance [Not Recovered/Not Resolved]
  - Decreased activity [Not Recovered/Not Resolved]
  - Back injury [Unknown]
  - Atrophy [Unknown]
  - Decreased gait velocity [Not Recovered/Not Resolved]
  - Drug dependence [Unknown]
  - Injury [Unknown]

NARRATIVE: CASE EVENT DATE: 200101
